FAERS Safety Report 24727707 (Version 1)
Quarter: 2024Q4

REPORT INFORMATION
  Report Type: Spontaneous
  Country: DZ (occurrence: DZ)
  Receive Date: 20241212
  Receipt Date: 20241212
  Transmission Date: 20250115
  Serious: Yes (Death, Life-Threatening, Other)
  Sender: ReacX Pharmaceuticals
  Company Number: DZ-REACX PHARMACEUTICALS-2024RCX00140

PATIENT
  Age: 19 Year
  Sex: Male

DRUGS (7)
  1. BUPRENORPHINE [Suspect]
     Active Substance: BUPRENORPHINE
     Indication: Suicide attempt
     Dosage: UNK
     Route: 048
  2. PREGABALIN [Suspect]
     Active Substance: PREGABALIN
     Indication: Suicide attempt
     Dosage: 3000 MG
     Route: 048
  3. BENZODIAZEPINE [Suspect]
     Active Substance: BENZODIAZEPINE
     Indication: Suicide attempt
     Dosage: UNK
     Route: 048
  4. UNSPECIFIED INGREDIENT [Suspect]
     Active Substance: UNSPECIFIED INGREDIENT
     Indication: Suicide attempt
     Dosage: UNK
     Route: 048
  5. CANNABIS SATIVA SUBSP. INDICA TOP [Suspect]
     Active Substance: CANNABIS SATIVA SUBSP. INDICA TOP
     Indication: Suicide attempt
     Dosage: UNK
     Route: 048
  6. AMPHETAMINE [Suspect]
     Active Substance: AMPHETAMINE
     Indication: Suicide attempt
     Dosage: UNK
     Route: 048
  7. METHAMPHETAMINE [Suspect]
     Active Substance: METHAMPHETAMINE
     Indication: Suicide attempt
     Dosage: UNK
     Route: 048

REACTIONS (6)
  - Suicide attempt [Fatal]
  - Altered state of consciousness [Unknown]
  - Tachycardia [Unknown]
  - Psychomotor hyperactivity [Unknown]
  - Drug abuse [Unknown]
  - Respiratory depression [Fatal]
